FAERS Safety Report 8922193 (Version 1)
Quarter: 2012Q4

REPORT INFORMATION
  Report Type: 
  Country: BR (occurrence: BR)
  Receive Date: 20121123
  Receipt Date: 20121123
  Transmission Date: 20130627
  Serious: Yes (Other)
  Sender: FDA-Public Use
  Company Number: PHHY2012BR105797

PATIENT
  Sex: Female
  Weight: 55 kg

DRUGS (4)
  1. LUDIOMIL [Suspect]
     Indication: DEPRESSION
     Dosage: 1 DF, daily
     Route: 048
  2. ESTRADIOL [Suspect]
     Dosage: 1 DF, daily
     Route: 048
  3. RIVOTRIL [Suspect]
     Indication: SLEEP DISORDER
     Dosage: 1 DF, daily
     Route: 048
  4. MELATONIN [Suspect]
     Indication: SLEEP DISORDER
     Dosage: 1 DF, daily
     Route: 048

REACTIONS (1)
  - Osteoporosis [Recovering/Resolving]
